FAERS Safety Report 8002514-4 (Version None)
Quarter: 2011Q4

REPORT INFORMATION
  Report Type: 
  Country: None (occurrence: None)
  Receive Date: 20111222
  Receipt Date: 20111212
  Transmission Date: 20120403
  Serious: Yes (Hospitalization)
  Sender: FDA-Public Use
  Company Number: US-JNJFOC-20111206112

PATIENT
  Age: 28 Year
  Sex: Male
  Weight: 77.9 kg

DRUGS (2)
  1. ACETAMINOPHEN [Suspect]
     Indication: PAIN IN EXTREMITY
     Dosage: TOOK 6-7 'BOTTLES' OVER 3 DAY PERIOD
     Route: 048
     Dates: start: 20111206
  2. ACETAMINOPHEN [Suspect]
     Route: 048

REACTIONS (4)
  - NAUSEA [None]
  - VOMITING [None]
  - OVERDOSE [None]
  - HEPATIC FUNCTION ABNORMAL [None]
